FAERS Safety Report 26209729 (Version 1)
Quarter: 2025Q4

REPORT INFORMATION
  Report Type: Spontaneous
  Country: US (occurrence: US)
  Receive Date: 20251229
  Receipt Date: 20251229
  Transmission Date: 20260117
  Serious: Yes (Other)
  Sender: NOVO NORDISK
  Company Number: US-NOVOPROD-1589640

PATIENT
  Age: 54 Year
  Sex: Female

DRUGS (1)
  1. OZEMPIC [Suspect]
     Active Substance: SEMAGLUTIDE
     Indication: Glucose tolerance impaired
     Dosage: 2 MG ONCE WEEKLY
     Route: 058
     Dates: start: 2024

REACTIONS (3)
  - Blindness [Unknown]
  - Eye haemorrhage [Unknown]
  - Product use in unapproved indication [Unknown]
